FAERS Safety Report 6924278-5 (Version None)
Quarter: 2010Q3

REPORT INFORMATION
  Report Type: 
  Country: None (occurrence: None)
  Receive Date: 20100811
  Receipt Date: 20100811
  Transmission Date: 20110219
  Serious: Yes (Disabling)
  Sender: FDA-Public Use
  Company Number: None

PATIENT
  Age: 63 Year
  Sex: Male
  Weight: 102 kg

DRUGS (8)
  1. ENBREL [Suspect]
     Indication: RHEUMATOID ARTHRITIS
     Dosage: 50 MG/ML ONCE WEEKLY 057 SUBCUTANEOUS
     Route: 058
  2. ACETAMINOPHEN AND HYDROCODONE BITARTRATE [Concomitant]
  3. METHOTREXATE [Concomitant]
  4. CLONAZEPAM [Concomitant]
  5. OMEPRAZOLE [Concomitant]
  6. GABAPENTIN [Concomitant]
  7. CYANOCOBALAM [Concomitant]
  8. VENLAFAXINE [Concomitant]

REACTIONS (11)
  - BALANCE DISORDER [None]
  - CEREBRAL ISCHAEMIA [None]
  - COGNITIVE DISORDER [None]
  - CONDITION AGGRAVATED [None]
  - DEMYELINATION [None]
  - DEPRESSION [None]
  - FATIGUE [None]
  - MEMORY IMPAIRMENT [None]
  - NUCLEAR MAGNETIC RESONANCE IMAGING BRAIN ABNORMAL [None]
  - RHEUMATOID ARTHRITIS [None]
  - THINKING ABNORMAL [None]
